FAERS Safety Report 7025414 (Version 4)
Quarter: 2012Q4

REPORT INFORMATION
  Report Type: Report from Study
  Country: ES (occurrence: ES)
  Receive Date: 20090617
  Receipt Date: 20121210
  Transmission Date: 20130627
  Serious: Yes (Hospitalization)
  Sender: FDA-Public Use
  Company Number: ES-PFIZER INC-2009226292

PATIENT
  Age: 67 Year
  Sex: Male
  Weight: 57 kg

DRUGS (9)
  1. SUNITINIB MALATE [Suspect]
     Indication: METASTATIC RENAL CELL CARCINOMA
     Dosage: 37.5 mg/day
     Route: 048
     Dates: start: 20090506
  2. CAPECITABINE [Suspect]
     Indication: METASTATIC RENAL CELL CARCINOMA
     Dosage: 650 mg/m2, 2x/day
     Route: 048
     Dates: start: 20090506
  3. DIGOXINE [Concomitant]
     Indication: FLUTTER ATRIAL
     Dosage: 1 DF, UNK
     Route: 048
     Dates: start: 2004
  4. PROPANOLOL [Concomitant]
     Indication: HYPERTENSION
     Dosage: 10 mg, daily
     Route: 048
  5. HIBOR [Concomitant]
     Indication: ANTICOAGULANT THERAPY
     Dosage: 3500 IU, daily
     Route: 058
     Dates: start: 20090505
  6. ENALAPRIL MALEATE [Concomitant]
     Indication: HYPERTENSION
     Dosage: 20 mg, daily
     Route: 048
     Dates: start: 20090514
  7. FUROSEMIDE [Concomitant]
     Indication: HYPERTENSION
     Dosage: 40 mg, daily
     Route: 048
     Dates: start: 20090512
  8. PARACETAMOL [Concomitant]
     Dosage: UNK
     Dates: start: 20090506
  9. IBUPROFEN [Concomitant]
     Dosage: UNK
     Dates: start: 20090506

REACTIONS (5)
  - Diarrhoea [Recovered/Resolved]
  - Mucosal inflammation [Recovered/Resolved]
  - Decreased appetite [Recovered/Resolved]
  - Asthenia [Recovered/Resolved]
  - Respiratory tract infection [Recovered/Resolved]
